FAERS Safety Report 23366524 (Version 1)
Quarter: 2024Q1

REPORT INFORMATION
  Report Type: Spontaneous
  Country: JP (occurrence: JP)
  Receive Date: 20240104
  Receipt Date: 20240104
  Transmission Date: 20240410
  Serious: Yes (Other)
  Sender: FDA-Public Use
  Company Number: JP-PFIZER INC-202300453085

PATIENT
  Age: 42 Year
  Sex: Female

DRUGS (1)
  1. CABERGOLINE [Suspect]
     Active Substance: CABERGOLINE
     Route: 048

REACTIONS (3)
  - Prinzmetal angina [Unknown]
  - Ventricular fibrillation [Unknown]
  - Ischaemia [Unknown]
